FAERS Safety Report 6137289-7 (Version None)
Quarter: 2009Q1

REPORT INFORMATION
  Report Type: 
  Country: None (occurrence: None)
  Receive Date: 20090326
  Receipt Date: 20090326
  Transmission Date: 20090719
  Serious: No
  Sender: FDA-Public Use
  Company Number: None

PATIENT
  Sex: Female

DRUGS (2)
  1. BUPROPION HCL [Suspect]
     Indication: ANXIETY
     Dosage: 75 MG ONCE BID PO
     Route: 048
  2. BUPROPION HCL [Suspect]
     Indication: DEPRESSION
     Dosage: 75 MG ONCE BID PO
     Route: 048

REACTIONS (3)
  - DRUG EXPOSURE DURING PREGNANCY [None]
  - NAUSEA [None]
  - PRODUCT QUALITY ISSUE [None]
